FAERS Safety Report 6058079-X (Version None)
Quarter: 2009Q1

REPORT INFORMATION
  Report Type: 
  Country: None (occurrence: None)
  Receive Date: 20090128
  Receipt Date: 20090116
  Transmission Date: 20090719
  Serious: Yes (Death, Hospitalization)
  Sender: FDA-Public Use
  Company Number: ALA_00231_2009

PATIENT
  Sex: Female

DRUGS (5)
  1. REGLAN [Suspect]
     Indication: PROPHYLAXIS OF NAUSEA AND VOMITING
     Dosage: (10 MG QID ORAL), (5 MG QID ORAL)
     Route: 048
     Dates: start: 20080301, end: 20080901
  2. REGLAN [Suspect]
     Indication: PROPHYLAXIS OF NAUSEA AND VOMITING
     Dosage: (10 MG QID ORAL), (5 MG QID ORAL)
     Route: 048
     Dates: start: 20080901, end: 20081101
  3. PERCOCET [Concomitant]
  4. DARVOCET /00220901/ [Concomitant]
  5. UNSPECIFIED ORAL HYPOGLYCEMIC [Concomitant]

REACTIONS (17)
  - ABASIA [None]
  - ACUTE RESPIRATORY FAILURE [None]
  - ANXIETY [None]
  - APHASIA [None]
  - BLOOD POTASSIUM INCREASED [None]
  - BLOOD PRESSURE INCREASED [None]
  - CARDIAC FAILURE ACUTE [None]
  - CONVULSION [None]
  - DIABETES MELLITUS INADEQUATE CONTROL [None]
  - HEADACHE [None]
  - IMMOBILE [None]
  - INSOMNIA [None]
  - LOSS OF CONSCIOUSNESS [None]
  - NECK PAIN [None]
  - POSTURE ABNORMAL [None]
  - TREMOR [None]
  - WHITE BLOOD CELL COUNT INCREASED [None]
